FAERS Safety Report 5149452-2 (Version None)
Quarter: 2006Q4

REPORT INFORMATION
  Report Type: 
  Country: None (occurrence: None)
  Receive Date: 20061113
  Receipt Date: 20060124
  Transmission Date: 20070319
  Serious: No
  Sender: FDA-Public Use
  Company Number: 433530

PATIENT
  Age: 53 Year
  Sex: Male

DRUGS (3)
  1. COREG [Suspect]
     Dosage: 6.25MG TWICE PER DAY
     Route: 048
     Dates: start: 20051001
  2. NEURONTIN [Concomitant]
  3. VYTORIN [Concomitant]

REACTIONS (2)
  - AMNESIA [None]
  - TOOTHACHE [None]
